FAERS Safety Report 13374222 (Version 1)
Quarter: 2017Q1

REPORT INFORMATION
  Report Type: Spontaneous
  Country: US (occurrence: US)
  Receive Date: 20170327
  Receipt Date: 20170327
  Transmission Date: 20170429
  Serious: No
  Sender: FDA-Public Use
  Company Number: None

PATIENT
  Age: 74 Year
  Sex: Male

DRUGS (1)
  1. ZYTIGA [Suspect]
     Active Substance: ABIRATERONE ACETATE
     Indication: PROSTATE CANCER

REACTIONS (5)
  - Urinary tract infection [None]
  - Fall [None]
  - Pharyngitis [None]
  - Oedema peripheral [None]
  - Malaise [None]

NARRATIVE: CASE EVENT DATE: 20170301
